FAERS Safety Report 19238438 (Version 2)
Quarter: 2021Q2

REPORT INFORMATION
  Report Type: Spontaneous
  Country: NL (occurrence: IE)
  Receive Date: 20210510
  Receipt Date: 20210519
  Transmission Date: 20210717
  Serious: Yes (Hospitalization, Disabling, Other)
  Sender: FDA-Public Use
  Company Number: IE-FRESENIUS KABI-FK202104491

PATIENT
  Age: 76 Year
  Sex: Male

DRUGS (2)
  1. LEVOFLOXACIN (MANUFACTURER UNKNOWN) [Suspect]
     Active Substance: LEVOFLOXACIN
     Indication: PNEUMONIA
     Dosage: LEVOFLOXACIN (G)?EXACT THERAPY DATES UNKNOWN BUT BETWEEN 23/AUG/2020 AND 09/SEP/2020
     Route: 065
     Dates: start: 202009
  2. CIPROFLOXACIN. [Suspect]
     Active Substance: CIPROFLOXACIN
     Indication: ORCHITIS
     Dosage: CIPROFLOXACIN (GENERIC)?500MG PO BD PATIENT RECEIVED 1 DOSE ON 09/SEP/2020 AT 10PM AND ONE DOSE AT 8
     Route: 048
     Dates: start: 20200909, end: 20200910

REACTIONS (7)
  - Impaired self-care [Not Recovered/Not Resolved]
  - Tendon disorder [Not Recovered/Not Resolved]
  - Weight bearing difficulty [Not Recovered/Not Resolved]
  - Pain in extremity [Not Recovered/Not Resolved]
  - Tenderness [Not Recovered/Not Resolved]
  - Tendon discomfort [Not Recovered/Not Resolved]
  - Tendon rupture [Not Recovered/Not Resolved]

NARRATIVE: CASE EVENT DATE: 20200910
